FAERS Safety Report 22959826 (Version 2)
Quarter: 2023Q4

REPORT INFORMATION
  Report Type: Spontaneous
  Country: CA (occurrence: CA)
  Receive Date: 20230920
  Receipt Date: 20231208
  Transmission Date: 20240110
  Serious: Yes (Other)
  Sender: FDA-Public Use
  Company Number: CA-SAMSUNG BIOEPIS-SB-2023-24546

PATIENT
  Age: 64 Year
  Sex: Male

DRUGS (5)
  1. TRASTUZUMAB [Suspect]
     Active Substance: TRASTUZUMAB
     Indication: Oesophageal adenocarcinoma
     Dosage: UNKNOWN
     Route: 065
  2. BROMOCRIPTINE [Concomitant]
     Active Substance: BROMOCRIPTINE
     Indication: Product used for unknown indication
     Dosage: UNKNOWN
     Route: 065
  3. IMATINIB [Concomitant]
     Active Substance: IMATINIB
     Indication: Product used for unknown indication
     Dosage: UNKNOWN
     Route: 065
  4. IMATINIB MESYLATE [Concomitant]
     Active Substance: IMATINIB MESYLATE
     Indication: Product used for unknown indication
     Route: 065
  5. LAMOTRIGINE [Concomitant]
     Active Substance: LAMOTRIGINE
     Indication: Product used for unknown indication
     Dosage: UNKNOWN
     Route: 065

REACTIONS (26)
  - Abdominal pain upper [Unknown]
  - Adenocarcinoma [Unknown]
  - Barrett^s oesophagus [Unknown]
  - Carbohydrate antigen 19-9 increased [Unknown]
  - Carcinoembryonic antigen increased [Unknown]
  - Constipation [Unknown]
  - Creatinine urine increased [Unknown]
  - Gastrooesophageal cancer [Unknown]
  - Haematocrit decreased [Unknown]
  - Haemoglobin decreased [Unknown]
  - Lymphadenopathy [Unknown]
  - Lymphocyte count decreased [Unknown]
  - Mean cell volume increased [Unknown]
  - Metastases to lymph nodes [Unknown]
  - Metastases to spine [Unknown]
  - Neoplasm [Unknown]
  - Nodule [Unknown]
  - Oesophageal carcinoma [Unknown]
  - Oesophagitis [Unknown]
  - Platelet count decreased [Unknown]
  - Prostate examination abnormal [Unknown]
  - Protein urine present [Unknown]
  - Red blood cell count decreased [Unknown]
  - White blood cell count decreased [Unknown]
  - Drug ineffective [Unknown]
  - Product use in unapproved indication [Unknown]
